FAERS Safety Report 6337317-X (Version None)
Quarter: 2009Q3

REPORT INFORMATION
  Report Type: 
  Country: None (occurrence: None)
  Receive Date: 20090828
  Receipt Date: 20090828
  Transmission Date: 20100115
  Serious: Yes (Other)
  Sender: FDA-Public Use
  Company Number: None

PATIENT
  Age: 48 Year
  Sex: Female
  Weight: 67.1324 kg

DRUGS (1)
  1. MIRENA [Suspect]
     Dates: start: 20090206, end: 20090814

REACTIONS (14)
  - BIOPSY BREAST ABNORMAL [None]
  - BLOOD PRESSURE FLUCTUATION [None]
  - CONFUSIONAL STATE [None]
  - DEPRESSION [None]
  - DIZZINESS [None]
  - DRY SKIN [None]
  - FATIGUE [None]
  - HEADACHE [None]
  - MAMMOGRAM ABNORMAL [None]
  - MUSCLE SPASMS [None]
  - NAUSEA [None]
  - UNEVALUABLE EVENT [None]
  - VAGINAL DISCHARGE [None]
  - VISION BLURRED [None]
